FAERS Safety Report 19437322 (Version 1)
Quarter: 2021Q2

REPORT INFORMATION
  Report Type: Spontaneous
  Country: US (occurrence: US)
  Receive Date: 20210618
  Receipt Date: 20210618
  Transmission Date: 20210717
  Serious: No
  Sender: FDA-Public Use
  Company Number: US-BIOHAVEN PHARMACEUTICALS-2021BHV00384

PATIENT
  Age: 56 Year
  Sex: Male
  Weight: 83.9 kg

DRUGS (9)
  1. DEPAKOTE [Concomitant]
     Active Substance: DIVALPROEX SODIUM
  2. UBRELVY [Concomitant]
     Active Substance: UBROGEPANT
  3. NURTEC ODT [Suspect]
     Active Substance: RIMEGEPANT SULFATE
     Indication: MIGRAINE WITH AURA
     Dosage: 75 MG, 1X/DAY, AS NEEDED
     Route: 048
     Dates: start: 2020
  4. REGLAN [Concomitant]
     Active Substance: METOCLOPRAMIDE HYDROCHLORIDE
  5. GENERIC IMITREX [Concomitant]
  6. EMGALITY [Concomitant]
     Active Substance: GALCANEZUMAB-GNLM
     Dosage: UNK, 1X/MONTH
  7. BOTOX [Concomitant]
     Active Substance: ONABOTULINUMTOXINA
     Dosage: IN THE TEMPLES AND HAIRLINE EVERY 12 WEEKS
  8. TIZANIDINE. [Concomitant]
     Active Substance: TIZANIDINE
  9. UNSPECIFIED NARCOTIC PAIN RELIEVERS [Concomitant]

REACTIONS (1)
  - Therapeutic product effect incomplete [Not Recovered/Not Resolved]

NARRATIVE: CASE EVENT DATE: 20210322
